FAERS Safety Report 5216253-6 (Version None)
Quarter: 2007Q1

REPORT INFORMATION
  Report Type: 
  Country: None (occurrence: None)
  Receive Date: 20070123
  Receipt Date: 20070112
  Transmission Date: 20070707
  Serious: Yes (Hospitalization)
  Sender: FDA-Public Use
  Company Number: IT-BOEHRINGER INGELHEIM PHARMACEUTICALS, INC.-2007-IT-00020IT

PATIENT
  Sex: Male

DRUGS (1)
  1. CLONIDINE [Suspect]

REACTIONS (1)
  - LEUKOPENIA [None]
